FAERS Safety Report 6817902-9 (Version None)
Quarter: 2010Q3

REPORT INFORMATION
  Report Type: 
  Country: None (occurrence: None)
  Receive Date: 20100706
  Receipt Date: 20100623
  Transmission Date: 20110219
  Serious: Yes (Other)
  Sender: FDA-Public Use
  Company Number: JP-PFIZER INC-2010067298

PATIENT
  Age: 38 Year
  Sex: Female

DRUGS (3)
  1. ZOLOFT [Suspect]
     Indication: OBSESSIVE-COMPULSIVE DISORDER
     Dosage: 25 MG, 1X/DAY
     Route: 048
     Dates: start: 20091116, end: 20091123
  2. ZOLOFT [Suspect]
     Dosage: 25 MG, 3X/DAY
     Route: 048
     Dates: start: 20091124, end: 20091207
  3. ZOLOFT [Suspect]
     Dosage: 50 MG, 2X/DAY
     Route: 048
     Dates: start: 20091208

REACTIONS (2)
  - DYSPNOEA [None]
  - RESTLESS LEGS SYNDROME [None]
